FAERS Safety Report 7251578-4 (Version None)
Quarter: 2011Q1

REPORT INFORMATION
  Report Type: 
  Country: None (occurrence: None)
  Receive Date: 20110128
  Receipt Date: 20110117
  Transmission Date: 20110831
  Serious: Yes (Hospitalization, Other)
  Sender: FDA-Public Use
  Company Number: CA-ELI_LILLY_AND_COMPANY-CA201101004171

PATIENT
  Age: 80 Year
  Sex: Female

DRUGS (3)
  1. ANTIHYPERTENSIVES [Concomitant]
     Indication: BLOOD PRESSURE
  2. FORTEO [Suspect]
     Indication: OSTEOPOROSIS
     Dosage: 20 UG, DAILY (1/D)
     Route: 058
     Dates: start: 20101027
  3. LIPITOR [Concomitant]
     Dosage: UNK, UNKNOWN
     Route: 065

REACTIONS (5)
  - GASTROINTESTINAL HAEMORRHAGE [None]
  - DIARRHOEA [None]
  - CONSTIPATION [None]
  - ASTHENIA [None]
  - FATIGUE [None]
